FAERS Safety Report 7314349-6 (Version None)
Quarter: 2011Q1

REPORT INFORMATION
  Report Type: 
  Country: None (occurrence: None)
  Receive Date: 20110225
  Receipt Date: 20100824
  Transmission Date: 20110831
  Serious: No
  Sender: FDA-Public Use
  Company Number: US-MYLANLABS-2010S1013652

PATIENT
  Age: 25 Year
  Sex: Female
  Weight: 65.32 kg

DRUGS (3)
  1. AMNESTEEM [Suspect]
     Indication: ACNE
     Route: 048
     Dates: start: 20100315, end: 20100726
  2. ORTHO TRI-CYCLEN [Concomitant]
  3. ACCUTANE [Suspect]

REACTIONS (4)
  - MOOD ALTERED [None]
  - FEELING OF DESPAIR [None]
  - DEPRESSED MOOD [None]
  - CRYING [None]
